FAERS Safety Report 7147878-9 (Version None)
Quarter: 2010Q4

REPORT INFORMATION
  Report Type: 
  Country: None (occurrence: None)
  Receive Date: 20101206
  Receipt Date: 20101206
  Transmission Date: 20110411
  Serious: Yes (Hospitalization)
  Sender: FDA-Public Use
  Company Number: None

PATIENT
  Age: 58 Year
  Sex: Male
  Weight: 87 kg

DRUGS (2)
  1. CLOMIPRAMINE HCL [Suspect]
     Indication: DEPRESSION
     Dosage: 200 MG HS PO
     Route: 048
     Dates: start: 20090115, end: 20100902
  2. TERAZOSIN HCL [Suspect]
     Indication: HYPERTENSION
     Dosage: 10 MG HS PO
     Route: 048
     Dates: start: 20021011, end: 20100902

REACTIONS (2)
  - HYPOTENSION [None]
  - PALPITATIONS [None]
